FAERS Safety Report 11517175 (Version 2)
Quarter: 2015Q3

REPORT INFORMATION
  Report Type: Report from Study
  Country: US (occurrence: US)
  Receive Date: 20150917
  Receipt Date: 20150925
  Transmission Date: 20151125
  Serious: Yes (Other)
  Sender: FDA-Public Use
  Company Number: US-BAXALTA-2015BLT001735

PATIENT
  Sex: Female

DRUGS (1)
  1. GAMMAGARD LIQUID [Suspect]
     Active Substance: HUMAN IMMUNOGLOBULIN G
     Indication: PRIMARY IMMUNODEFICIENCY SYNDROME
     Dosage: 10 G, 1X A WEEK
     Route: 058

REACTIONS (3)
  - Bronchitis [Recovering/Resolving]
  - Infusion site swelling [Recovering/Resolving]
  - Fatigue [Recovering/Resolving]
